FAERS Safety Report 10356394 (Version 1)
Quarter: 2014Q3

REPORT INFORMATION
  Report Type: Spontaneous
  Country: US (occurrence: None)
  Receive Date: 20140730
  Receipt Date: 20140730
  Transmission Date: 20150326
  Serious: Yes (Other)
  Sender: FDA-Public Use
  Company Number: None

PATIENT
  Age: 53 Year
  Sex: Female
  Weight: 78.02 kg

DRUGS (2)
  1. NEURONTIN [Suspect]
     Active Substance: GABAPENTIN
     Indication: NEURALGIA
     Dosage: 1 PILL TID ORAL
     Route: 048
     Dates: start: 20140101, end: 20140331
  2. NEURONTIN [Suspect]
     Active Substance: GABAPENTIN
     Indication: NEURITIS
     Dosage: 1 PILL TID ORAL
     Route: 048
     Dates: start: 20140101, end: 20140331

REACTIONS (4)
  - Headache [None]
  - Neuralgia [None]
  - No therapeutic response [None]
  - Condition aggravated [None]

NARRATIVE: CASE EVENT DATE: 20140101
